FAERS Safety Report 9434173 (Version 2)
Quarter: 2013Q4

REPORT INFORMATION
  Report Type: Report from Study
  Country: DE (occurrence: DE)
  Receive Date: 20130801
  Receipt Date: 20131104
  Transmission Date: 20140711
  Serious: Yes (Hospitalization)
  Sender: FDA-Public Use
  Company Number: DE-BRISTOL-MYERS SQUIBB COMPANY-19155415

PATIENT
  Age: 84 Year
  Sex: Female
  Weight: 47 kg

DRUGS (4)
  1. ERBITUX SOLN FOR INF [Suspect]
     Indication: SQUAMOUS CELL CARCINOMA OF HEAD AND NECK
     Dosage: 250MG/M2-1IN1WK-6-26MAR13?250MG/M2-1IN1WK-3APR13-UNK?INT 26MAR13,RESTARTED ON 3APR13?3APR-17APR13
     Route: 042
     Dates: start: 20130226, end: 20130417
  2. LAXOBERAL [Concomitant]
     Indication: CONSTIPATION
  3. L-THYROXINE [Concomitant]
     Indication: HYPOTHYROIDISM
     Dates: start: 20130226
  4. NOVALGIN [Concomitant]
     Indication: PAIN
     Dosage: 1DF=30 GTT
     Route: 048
     Dates: start: 20130226

REACTIONS (3)
  - Dermatitis acneiform [Recovering/Resolving]
  - Radiation mucositis [Unknown]
  - Hypocalcaemia [Recovered/Resolved]
